FAERS Safety Report 8930482 (Version 1)
Quarter: 2012Q4

REPORT INFORMATION
  Report Type: 
  Country: FR (occurrence: FR)
  Receive Date: 20121128
  Receipt Date: 20121128
  Transmission Date: 20130627
  Serious: Yes (Other)
  Sender: FDA-Public Use
  Company Number: FR-ASTRAZENECA-2012SE87966

PATIENT
  Age: 21556 Day
  Sex: Male

DRUGS (7)
  1. XEROQUEL [Suspect]
     Indication: SCHIZOPHRENIA
     Route: 048
     Dates: start: 201204, end: 20121003
  2. XEROQUEL [Suspect]
     Indication: SCHIZOPHRENIA
     Route: 048
     Dates: start: 20121004
  3. MODECATE [Concomitant]
     Indication: SCHIZOPHRENIA
     Route: 030
     Dates: start: 198204
  4. TERCIAN [Concomitant]
     Indication: SCHIZOPHRENIA
     Route: 048
     Dates: start: 201011
  5. PARKINANE [Concomitant]
     Route: 048
     Dates: start: 20120602
  6. DIFFU K [Concomitant]
     Route: 048
     Dates: start: 20121005
  7. DOLIPRANE [Concomitant]
     Route: 048
     Dates: start: 20120619

REACTIONS (4)
  - Oedema [Recovered/Resolved]
  - Depressed level of consciousness [Recovered/Resolved]
  - Hyponatraemia [Recovered/Resolved]
  - Vomiting [Recovered/Resolved]
